FAERS Safety Report 11127190 (Version 2)
Quarter: 2015Q2

REPORT INFORMATION
  Report Type: Spontaneous
  Country: US (occurrence: US)
  Receive Date: 20150521
  Receipt Date: 20150604
  Transmission Date: 20150821
  Serious: No
  Sender: FDA-Public Use
  Company Number: US-ASTRAZENECA-2015SE44843

PATIENT
  Sex: Female

DRUGS (1)
  1. PULMICORT FLEXHALER [Suspect]
     Active Substance: BUDESONIDE
     Indication: ASTHMA
     Dosage: ONE PUFF TWICE DAILY
     Route: 055
     Dates: start: 201504

REACTIONS (5)
  - Multiple allergies [Unknown]
  - Cough [Recovering/Resolving]
  - Circumstance or information capable of leading to medication error [Unknown]
  - Visual acuity reduced [Unknown]
  - Hearing impaired [Unknown]
